FAERS Safety Report 5086871-7 (Version None)
Quarter: 2006Q3

REPORT INFORMATION
  Report Type: 
  Country: None (occurrence: None)
  Receive Date: 20060818
  Receipt Date: 20060731
  Transmission Date: 20061208
  Serious: Yes (Other)
  Sender: FDA-Public Use
  Company Number: US200602002241

PATIENT
  Age: 36 Year
  Sex: Female
  Weight: 95.2 kg

DRUGS (4)
  1. ZYPREXA [Suspect]
     Indication: DEPRESSION
     Dosage: 10 MG ORAL ; 20 MG ORAL
     Route: 048
     Dates: end: 20000501
  2. ZYPREXA [Suspect]
     Indication: DEPRESSION
     Dosage: 10 MG ORAL ; 20 MG ORAL
     Route: 048
     Dates: start: 19960101
  3. DEPAKOTE [Concomitant]
  4. PROZAC [Concomitant]

REACTIONS (4)
  - BLOOD TRIGLYCERIDES INCREASED [None]
  - DIABETES MELLITUS NON-INSULIN-DEPENDENT [None]
  - HEPATITIS VIRAL [None]
  - HYPERTENSION [None]
